FAERS Safety Report 8503244-2 (Version None)
Quarter: 2012Q3

REPORT INFORMATION
  Report Type: 
  Country: None (occurrence: None)
  Receive Date: 20120711
  Receipt Date: 20120706
  Transmission Date: 20120928
  Serious: No
  Sender: FDA-Public Use
  Company Number: US-PFIZER INC-2012162542

PATIENT
  Sex: Female

DRUGS (1)
  1. SUTENT [Suspect]
     Indication: RENAL CANCER
     Dosage: 37.5MG (12.5 MG AND 25 MG) DAILY
     Dates: start: 20120307

REACTIONS (3)
  - PAIN [None]
  - NAUSEA [None]
  - VOMITING [None]
